FAERS Safety Report 24837913 (Version 2)
Quarter: 2025Q1

REPORT INFORMATION
  Report Type: Spontaneous
  Country: CA (occurrence: CA)
  Receive Date: 20250113
  Receipt Date: 20250114
  Transmission Date: 20250409
  Serious: Yes (Death, Hospitalization, Other)
  Sender: MERCK
  Company Number: CA-009507513-2501CAN002089

PATIENT
  Age: 62 Year
  Sex: Female
  Weight: 51 kg

DRUGS (2)
  1. KEYTRUDA [Suspect]
     Active Substance: PEMBROLIZUMAB
     Indication: Squamous cell carcinoma
     Route: 042
  2. FLUOROURACIL\LEUCOVORIN CALCIUM\OXALIPLATIN [Concomitant]
     Active Substance: FLUOROURACIL\LEUCOVORIN CALCIUM\OXALIPLATIN

REACTIONS (7)
  - Acute myocardial infarction [Fatal]
  - Bacteraemia [Fatal]
  - Erythema multiforme [Fatal]
  - Ischaemic stroke [Fatal]
  - Pain [Fatal]
  - Respiratory failure [Fatal]
  - Stevens-Johnson syndrome [Fatal]
